FAERS Safety Report 20785224 (Version 1)
Quarter: 2022Q2

REPORT INFORMATION
  Report Type: Spontaneous
  Country: US (occurrence: None)
  Receive Date: 20220504
  Receipt Date: 20220504
  Transmission Date: 20220721
  Serious: No
  Sender: FDA-Public Use
  Company Number: None

PATIENT
  Age: 27 Year
  Sex: Female
  Weight: 162.45 kg

DRUGS (6)
  1. ABILIFY MAINTENA [Suspect]
     Active Substance: ARIPIPRAZOLE
     Dosage: OTHER FREQUENCY : ONCE A MONTH;?
     Route: 030
     Dates: start: 20190524
  2. clindamycin gel 1% [Concomitant]
     Dates: start: 20220330
  3. topiramate 25mg er caps [Concomitant]
     Dates: start: 20220316
  4. MINOCYCLINE [Concomitant]
     Active Substance: MINOCYCLINE HYDROCHLORIDE
     Dates: start: 20220330
  5. VITAMIN D3 [Concomitant]
     Active Substance: CHOLECALCIFEROL
     Dates: start: 20220118
  6. BUPROPION [Concomitant]
     Active Substance: BUPROPION
     Dates: start: 20211026

REACTIONS (2)
  - Injection site pain [None]
  - Limb injury [None]

NARRATIVE: CASE EVENT DATE: 20220415
